FAERS Safety Report 7516447-0 (Version None)
Quarter: 2011Q2

REPORT INFORMATION
  Report Type: 
  Country: None (occurrence: None)
  Receive Date: 20110428
  Receipt Date: 20100922
  Transmission Date: 20111010
  Serious: Yes (Other)
  Sender: FDA-Public Use
  Company Number: THYM-1001825

PATIENT
  Sex: Male

DRUGS (2)
  1. THYMOGLOBULIN [Suspect]
     Indication: PROPHYLAXIS AGAINST TRANSPLANT REJECTION
     Dosage: 1.5 MG/KG, INTRAVENOUS
     Route: 042
  2. IMMUNOSUPPRESSIVE AGENTS [Concomitant]

REACTIONS (4)
  - PYREXIA [None]
  - PAIN [None]
  - ARTHRALGIA [None]
  - DRUG SPECIFIC ANTIBODY PRESENT [None]
